FAERS Safety Report 18591846 (Version 1)
Quarter: 2020Q4

REPORT INFORMATION
  Report Type: Spontaneous
  Country: US (occurrence: US)
  Receive Date: 20201208
  Receipt Date: 20201208
  Transmission Date: 20210114
  Serious: Yes (Death, Other)
  Sender: FDA-Public Use
  Company Number: US-PFIZER INC-2018161309

PATIENT
  Age: 89 Year
  Sex: Female

DRUGS (4)
  1. LYRICA [Suspect]
     Active Substance: PREGABALIN
     Indication: PHANTOM LIMB SYNDROME
     Dosage: UNK, AS NEEDED  (1-2 CAPSULES EVERY BEDTIME)
     Route: 048
  2. LYRICA [Suspect]
     Active Substance: PREGABALIN
     Indication: DISCOMFORT
     Dosage: 75 MG, AS NEEDED (3X 25 MG, MAY TAKE 1-3 CAPSULES EVERY BEDTIME AS NEEDED)
     Route: 048
  3. LYRICA [Suspect]
     Active Substance: PREGABALIN
     Dosage: UNK (THREE CAPSULES AT BEDTIME, BUT SOMETIMES I ONLY TAKE TWO)
  4. LYRICA [Suspect]
     Active Substance: PREGABALIN
     Dosage: 100 MG, 1X/DAY (100MG (4X25MG) PO (ORALLY) QHS (BEFORE BED)) (2 TABS AT 9PM AND 2 TABS AT MIDNIGHT)
     Route: 048

REACTIONS (4)
  - Death [Fatal]
  - Off label use [Unknown]
  - Intentional product use issue [Unknown]
  - Product use in unapproved indication [Unknown]
